FAERS Safety Report 5054624-1 (Version None)
Quarter: 2006Q3

REPORT INFORMATION
  Report Type: 
  Country: None (occurrence: None)
  Receive Date: 20060719
  Receipt Date: 20060707
  Transmission Date: 20061208
  Serious: Yes (Hospitalization, Other)
  Sender: FDA-Public Use
  Company Number: US-JNJFOC-20060505620

PATIENT
  Sex: Male

DRUGS (4)
  1. REMICADE [Suspect]
     Indication: RHEUMATOID ARTHRITIS
  2. INFLUENZA VACCINE [Suspect]
     Indication: PROPHYLAXIS
  3. METHOTREXATE [Concomitant]
     Indication: RHEUMATOID ARTHRITIS
     Dosage: DOSE DECREASED
  4. SULFASALAZINE [Concomitant]
     Indication: RHEUMATOID ARTHRITIS

REACTIONS (2)
  - DERMATITIS [None]
  - MILLER FISHER SYNDROME [None]
